FAERS Safety Report 6563958-0 (Version None)
Quarter: 2010Q1

REPORT INFORMATION
  Report Type: 
  Country: None (occurrence: None)
  Receive Date: 20100131
  Receipt Date: 20100120
  Transmission Date: 20100710
  Serious: Yes (Other)
  Sender: FDA-Public Use
  Company Number: US-JNJFOC-20100110813

PATIENT
  Sex: Male

DRUGS (1)
  1. EXTRA STRENGTH TYLENOL PM RAPID RELEASE [Suspect]
     Indication: DRUG USE FOR UNKNOWN INDICATION
     Dosage: 2000 MG, FREQUENCY NOT REPORTED

REACTIONS (2)
  - BLOOD URINE PRESENT [None]
  - PRODUCT QUALITY ISSUE [None]
